FAERS Safety Report 13024678 (Version 1)
Quarter: 2016Q4

REPORT INFORMATION
  Report Type: Spontaneous
  Country: US (occurrence: US)
  Receive Date: 20161213
  Receipt Date: 20161213
  Transmission Date: 20170207
  Serious: Yes (Hospitalization, Other)
  Sender: FDA-Public Use
  Company Number: US-ROCHE-1708888

PATIENT
  Age: 69 Year
  Sex: Female
  Weight: 83 kg

DRUGS (2)
  1. ACTIVASE [Suspect]
     Active Substance: ALTEPLASE
     Indication: CEREBRAL INFARCTION
  2. ACTIVASE [Suspect]
     Active Substance: ALTEPLASE
     Indication: CEREBROVASCULAR ACCIDENT
     Dosage: 7.4 BOLUS 67 INFUSION
     Route: 042
     Dates: start: 20160207

REACTIONS (4)
  - Anaphylactic reaction [Recovered/Resolved]
  - Product quality issue [Unknown]
  - Angioedema [Recovered/Resolved]
  - Lip swelling [Recovered/Resolved]

NARRATIVE: CASE EVENT DATE: 20160207
